FAERS Safety Report 23611775 (Version 3)
Quarter: 2024Q1

REPORT INFORMATION
  Report Type: Other
  Country: US (occurrence: None)
  Receive Date: 20240308
  Receipt Date: 20240318
  Transmission Date: 20240410
  Serious: Yes (Hospitalization)
  Sender: FDA-Public Use
  Company Number: US-ROCHE-3517458

PATIENT
  Age: 69 Year
  Sex: Male
  Weight: 68.1 kg

DRUGS (12)
  1. OCREVUS [Suspect]
     Active Substance: OCRELIZUMAB
     Indication: Relapsing-remitting multiple sclerosis
     Dosage: INFUSE 600MG INTRAVENOUSLY EVERY 6 MONTH, DOT: 27/APR/2021, 05/JUL/2023, 08/DEC/2022, 26/MAY/2022, 1
     Route: 042
     Dates: start: 2019, end: 20200523
  2. OCREVUS [Suspect]
     Active Substance: OCRELIZUMAB
     Indication: Secondary progressive multiple sclerosis
     Route: 042
     Dates: start: 202104, end: 202205
  3. OCREVUS [Suspect]
     Active Substance: OCRELIZUMAB
     Route: 042
     Dates: start: 20220429
  4. OCREVUS [Suspect]
     Active Substance: OCRELIZUMAB
     Route: 042
     Dates: start: 2022, end: 202301
  5. OXYBUTYNIN [Concomitant]
     Active Substance: OXYBUTYNIN\OXYBUTYNIN CHLORIDE
  6. GABAPENTIN [Concomitant]
     Active Substance: GABAPENTIN
  7. BACLOFEN [Concomitant]
     Active Substance: BACLOFEN
  8. ACETAMINOPHEN\HYDROCODONE [Concomitant]
     Active Substance: ACETAMINOPHEN\HYDROCODONE
     Indication: Back pain
  9. MORPHINE SULFATE [Concomitant]
     Active Substance: MORPHINE SULFATE
     Indication: Back pain
  10. CRANBERRY [Concomitant]
     Active Substance: CRANBERRY
  11. VITAMIN C [Concomitant]
     Active Substance: ASCORBIC ACID
  12. AVONEX [Concomitant]
     Active Substance: INTERFERON BETA-1A

REACTIONS (9)
  - Urinary tract infection [Recovered/Resolved]
  - Aphasia [Not Recovered/Not Resolved]
  - Off label use [Unknown]
  - Amnesia [Recovered/Resolved]
  - COVID-19 [Recovered/Resolved]
  - Ill-defined disorder [Not Recovered/Not Resolved]
  - Sensory disturbance [Unknown]
  - Multiple sclerosis [Unknown]
  - Somnolence [Unknown]

NARRATIVE: CASE EVENT DATE: 20240101
